FAERS Safety Report 21652934 (Version 1)
Quarter: 2022Q4

REPORT INFORMATION
  Report Type: Spontaneous
  Country: US (occurrence: US)
  Receive Date: 20221128
  Receipt Date: 20221128
  Transmission Date: 20230113
  Serious: Yes (Other)
  Sender: FDA-Public Use
  Company Number: US-PFIZER INC-2021064906

PATIENT
  Age: 70 Year
  Sex: Female

DRUGS (1)
  1. XELJANZ [Suspect]
     Active Substance: TOFACITINIB CITRATE
     Dosage: 5 MG, ALTERNATE DAY

REACTIONS (5)
  - Hallucination [Unknown]
  - Intentional product misuse [Unknown]
  - Feeling abnormal [Unknown]
  - Hyperacusis [Unknown]
  - Product packaging difficult to open [Unknown]
